FAERS Safety Report 12353148 (Version 2)
Quarter: 2016Q2

REPORT INFORMATION
  Report Type: Spontaneous
  Country: US (occurrence: US)
  Receive Date: 20160510
  Receipt Date: 20160603
  Transmission Date: 20160815
  Serious: Yes (Life-Threatening, Hospitalization)
  Sender: FDA-Public Use
  Company Number: US-ELI_LILLY_AND_COMPANY-US201605001522

PATIENT
  Age: 7 Year
  Sex: Female
  Weight: 21.2 kg

DRUGS (3)
  1. STRATTERA [Suspect]
     Active Substance: ATOMOXETINE HYDROCHLORIDE
     Indication: ATTENTION DEFICIT/HYPERACTIVITY DISORDER
     Dosage: 25 MG, UNK
     Route: 065
  2. STRATTERA [Suspect]
     Active Substance: ATOMOXETINE HYDROCHLORIDE
     Dosage: 10 MG, BID
     Route: 048
  3. OMEPRAZOLE. [Concomitant]
     Active Substance: OMEPRAZOLE
     Dosage: 10 MG, QD
     Route: 048

REACTIONS (7)
  - Abnormal behaviour [Recovering/Resolving]
  - Decreased appetite [Recovering/Resolving]
  - Respiratory failure [Recovered/Resolved]
  - Cystic fibrosis [Recovered/Resolved]
  - Failure to thrive [Not Recovered/Not Resolved]
  - Weight decreased [Recovering/Resolving]
  - Pneumonia [Recovered/Resolved]
